FAERS Safety Report 4422647-9 (Version None)
Quarter: 2004Q3

REPORT INFORMATION
  Report Type: 
  Country: None (occurrence: None)
  Receive Date: 20040713
  Receipt Date: 20030728
  Transmission Date: 20050211
  Serious: No
  Sender: FDA-Public Use
  Company Number: PHEH2003US05747

PATIENT
  Age: 41 Year
  Sex: Female

DRUGS (3)
  1. ELIDEL [Suspect]
     Indication: ROSACEA
     Dosage: QD, TOPICAL
     Route: 061
     Dates: start: 20030522, end: 20030702
  2. ALCOHOL(ETHANOL) [Suspect]
  3. YASMIN [Concomitant]

REACTIONS (3)
  - ERYTHEMA [None]
  - HYPOAESTHESIA [None]
  - SWELLING FACE [None]
